FAERS Safety Report 13401745 (Version 1)
Quarter: 2017Q2

REPORT INFORMATION
  Report Type: Report from Study
  Country: CO (occurrence: CO)
  Receive Date: 20170404
  Receipt Date: 20170404
  Transmission Date: 20170830
  Serious: Yes (Other)
  Sender: FDA-Public Use
  Company Number: PHHY2016CO178448

PATIENT
  Age: 51 Year
  Sex: Female
  Weight: 54 kg

DRUGS (7)
  1. EXEMESTANE. [Concomitant]
     Active Substance: EXEMESTANE
     Indication: PRODUCT USED FOR UNKNOWN INDICATION
     Dosage: 25 MG, QD
     Route: 048
  2. AFINITOR [Suspect]
     Active Substance: EVEROLIMUS
     Indication: BREAST CANCER METASTATIC
     Dosage: 10 MG, QD
     Route: 048
     Dates: start: 20161220, end: 20170318
  3. ACETAMINOPHEN AND CODEINE [Concomitant]
     Active Substance: ACETAMINOPHEN\CODEINE PHOSPHATE
     Indication: PAIN
     Dosage: 325 MG, Q12H
     Route: 048
  4. LEVOTHYROXINE. [Concomitant]
     Active Substance: LEVOTHYROXINE
     Indication: PRODUCT USED FOR UNKNOWN INDICATION
     Dosage: 50 MG, QD
     Route: 048
  5. TRAMADOL. [Concomitant]
     Active Substance: TRAMADOL
     Indication: PRODUCT USED FOR UNKNOWN INDICATION
     Route: 065
  6. CODEINE [Concomitant]
     Active Substance: CODEINE
     Indication: PRODUCT USED FOR UNKNOWN INDICATION
     Route: 065
  7. AFINITOR [Suspect]
     Active Substance: EVEROLIMUS
     Dosage: 10 MG, QD
     Route: 048
     Dates: start: 20170328

REACTIONS (14)
  - Decreased appetite [Recovering/Resolving]
  - Investigation abnormal [Unknown]
  - Chest discomfort [Unknown]
  - Dry mouth [Unknown]
  - Haemoglobin decreased [Unknown]
  - Nausea [Unknown]
  - Stomatitis [Unknown]
  - Hepatic steatosis [Unknown]
  - Inflammation [Unknown]
  - Pain [Unknown]
  - Platelet count decreased [Unknown]
  - Abdominal discomfort [Unknown]
  - Thirst [Unknown]
  - Insomnia [Unknown]

NARRATIVE: CASE EVENT DATE: 20161220
